FAERS Safety Report 6702811-6 (Version None)
Quarter: 2010Q3

REPORT INFORMATION
  Report Type: 
  Country: None (occurrence: None)
  Receive Date: 20100429
  Receipt Date: 20100429
  Transmission Date: 20110219
  Serious: Yes (Other)
  Sender: FDA-Public Use
  Company Number: None

PATIENT
  Age: 52 Year
  Sex: Male
  Weight: 111.1313 kg

DRUGS (1)
  1. THERACYS [Suspect]
     Indication: BLADDER CANCER
     Dates: start: 20100118, end: 20100215

REACTIONS (4)
  - CYSTITIS NONINFECTIVE [None]
  - GROIN PAIN [None]
  - NEOPLASM RECURRENCE [None]
  - POLLAKIURIA [None]
